FAERS Safety Report 20151763 (Version 1)
Quarter: 2021Q4

REPORT INFORMATION
  Report Type: Report from Study
  Country: IT (occurrence: IT)
  Receive Date: 20211206
  Receipt Date: 20211206
  Transmission Date: 20220303
  Serious: Yes (Other)
  Sender: FDA-Public Use
  Company Number: None

PATIENT
  Age: 35 Year
  Sex: Female

DRUGS (3)
  1. XANAX [Suspect]
     Active Substance: ALPRAZOLAM
     Dosage: 4 DF TOTAL
     Route: 048
     Dates: start: 20211019, end: 20211019
  2. ZOLOFT [Suspect]
     Active Substance: SERTRALINE HYDROCHLORIDE
     Dosage: 50MG, 7 DF TOTAL
     Route: 048
     Dates: start: 20211019, end: 20211019
  3. FLURAZEPAM MONOHYDROCHLORIDE [Suspect]
     Active Substance: FLURAZEPAM MONOHYDROCHLORIDE
     Dosage: 6 DF TOTAL
     Route: 048
     Dates: start: 20211019, end: 20211019

REACTIONS (3)
  - Overdose [Unknown]
  - Sedation [Recovering/Resolving]
  - Drug abuse [Recovering/Resolving]

NARRATIVE: CASE EVENT DATE: 20211019
